FAERS Safety Report 8158172 (Version 2)
Quarter: 2012Q4

REPORT INFORMATION
  Report Type: 
  Country: MX (occurrence: MX)
  Receive Date: 20110927
  Receipt Date: 20121029
  Transmission Date: 20130627
  Serious: Yes (Hospitalization)
  Sender: FDA-Public Use
  Company Number: PHHY2011MX82367

PATIENT
  Age: 76 Year
  Sex: Female

DRUGS (2)
  1. CO-DIOVAN [Suspect]
     Indication: HYPERTENSION
     Dosage: 2 DF (80mg vals, 12,5 mg hydroch) daily
     Route: 048
     Dates: start: 200910
  2. CO-DIOVAN [Suspect]
     Dosage: 2 DF (160mg vals, 12,5 mg hydro) daily
     Route: 048

REACTIONS (1)
  - Mental disorder [Recovered/Resolved]
